FAERS Safety Report 4749953-2 (Version None)
Quarter: 2005Q3

REPORT INFORMATION
  Report Type: 
  Country: None (occurrence: None)
  Receive Date: 20050822
  Receipt Date: 20050309
  Transmission Date: 20060218
  Serious: Yes (Hospitalization, Disabling)
  Sender: FDA-Public Use
  Company Number: US-MERCK-0503USA01985

PATIENT
  Age: 57 Year
  Sex: Male
  Weight: 116 kg

DRUGS (17)
  1. VIOXX [Suspect]
     Indication: ARTHRITIS
     Route: 048
     Dates: start: 20040207, end: 20041001
  2. ASPIRIN [Concomitant]
     Route: 048
     Dates: start: 20000101
  3. PREVACID [Concomitant]
     Route: 065
  4. ZOCOR [Concomitant]
     Route: 065
     Dates: start: 19960101
  5. TOPROL-XL [Concomitant]
     Indication: HYPERTENSION
     Route: 065
     Dates: start: 20000101
  6. PREDNISONE [Concomitant]
     Route: 065
  7. GENOTROPIN [Concomitant]
     Route: 065
  8. LEVOXYL [Concomitant]
     Route: 065
  9. DDAVP [Concomitant]
     Route: 065
  10. BIAXIN [Concomitant]
     Route: 065
  11. NASACORT [Concomitant]
     Route: 065
  12. DEPO-TESTOSTERONE [Concomitant]
     Route: 065
  13. NITROGLYCERIN [Concomitant]
     Route: 065
  14. ADVIL [Concomitant]
     Route: 065
     Dates: end: 20040201
  15. TYLENOL [Concomitant]
     Route: 065
     Dates: start: 20040101
  16. VITAMINS (UNSPECIFIED) [Concomitant]
     Route: 065
  17. ALLEGRA [Concomitant]
     Route: 065

REACTIONS (5)
  - ACUTE MYOCARDIAL INFARCTION [None]
  - CORONARY ARTERY DISEASE [None]
  - MUIR-TORRE SYNDROME [None]
  - SEBACEOUS ADENOMA [None]
  - SLEEP APNOEA SYNDROME [None]
